FAERS Safety Report 15374942 (Version 1)
Quarter: 2018Q3

REPORT INFORMATION
  Report Type: Spontaneous
  Country: JP (occurrence: JP)
  Receive Date: 20180912
  Receipt Date: 20180912
  Transmission Date: 20181010
  Serious: Yes (Death, Hospitalization, Other)
  Sender: FDA-Public Use
  Company Number: JP-SA-2018SA250378

PATIENT
  Age: 73 Year
  Sex: Male

DRUGS (9)
  1. ELPLAT [Suspect]
     Active Substance: OXALIPLATIN
     Indication: COLON CANCER
     Dosage: 210 MG, QCY
     Route: 041
     Dates: start: 20141022, end: 20141022
  2. BFLUID [Concomitant]
     Active Substance: AMINO ACIDS\DEXTROSE\ELECTROLYTES NOS\VITAMINS
  3. TS?1 [Suspect]
     Active Substance: GIMERACIL\OTERACIL\TEGAFUR
     Indication: COLON CANCER
     Dosage: 60 MG, BID
     Route: 048
     Dates: start: 20141022, end: 20141217
  4. SOLULACT D [Concomitant]
  5. SOLU?CORTEF [Concomitant]
     Active Substance: HYDROCORTISONE SODIUM SUCCINATE
  6. ELPLAT [Suspect]
     Active Substance: OXALIPLATIN
     Dosage: 210 MG, QCY
     Route: 041
     Dates: start: 20141203, end: 20141203
  7. ELENTAL [Concomitant]
     Active Substance: AMINO ACIDS\CARBOHYDRATES\MINERALS\SOYBEAN OIL\VITAMINS
     Route: 051
  8. ZOSYN [Concomitant]
     Active Substance: PIPERACILLIN SODIUM\TAZOBACTAM SODIUM
  9. FUROSEMIDE. [Concomitant]
     Active Substance: FUROSEMIDE

REACTIONS (7)
  - Hepatic function abnormal [Unknown]
  - Interstitial lung disease [Fatal]
  - Adrenal insufficiency [Unknown]
  - Pneumonia [Unknown]
  - Hypoalbuminaemia [Unknown]
  - Hyperkalaemia [Unknown]
  - Pneumonia cytomegaloviral [Fatal]
